FAERS Safety Report 4808310-0 (Version None)
Quarter: 2005Q4

REPORT INFORMATION
  Report Type: 
  Country: None (occurrence: None)
  Receive Date: 20051021
  Receipt Date: 20040113
  Transmission Date: 20060501
  Serious: No
  Sender: FDA-Public Use
  Company Number: DE_040112801

PATIENT
  Age: 30 Year
  Sex: Female

DRUGS (6)
  1. ZYPREXA [Suspect]
     Indication: DEPRESSION
     Dosage: 15 MG/DAY
     Dates: start: 20030923
  2. ZYPREXA [Suspect]
     Indication: SUICIDAL IDEATION
     Dosage: 15 MG/DAY
     Dates: start: 20030923
  3. LORAZEPAM [Concomitant]
  4. IRON [Concomitant]
  5. AMITRIPTYLINE HCL [Concomitant]
  6. TENORMIN [Concomitant]

REACTIONS (7)
  - BLOOD PRESSURE INCREASED [None]
  - CAESAREAN SECTION [None]
  - DRUG EXPOSURE DURING PREGNANCY [None]
  - LEUKOPENIA [None]
  - PRE-ECLAMPSIA [None]
  - PREMATURE LABOUR [None]
  - SHIFT TO THE LEFT [None]
